FAERS Safety Report 10422230 (Version 2)
Quarter: 2014Q3

REPORT INFORMATION
  Report Type: Spontaneous
  Country: US (occurrence: US)
  Receive Date: 20140901
  Receipt Date: 20140903
  Transmission Date: 20150326
  Serious: No
  Sender: FDA-Public Use
  Company Number: US-PFIZER INC-2014239297

PATIENT
  Age: 67 Year
  Sex: Female

DRUGS (2)
  1. CYCLOPHOSPHAMIDE. [Concomitant]
     Active Substance: CYCLOPHOSPHAMIDE
     Dosage: UNK
  2. DOXORUBICIN [Suspect]
     Active Substance: DOXORUBICIN
     Indication: BREAST CANCER FEMALE
     Dosage: INFUSION
     Route: 042

REACTIONS (1)
  - Injection site reaction [Unknown]

NARRATIVE: CASE EVENT DATE: 201408
